FAERS Safety Report 8236935-1 (Version None)
Quarter: 2012Q1

REPORT INFORMATION
  Report Type: 
  Country: None (occurrence: None)
  Receive Date: 20120327
  Receipt Date: 20120316
  Transmission Date: 20120608
  Serious: Yes (Other)
  Sender: FDA-Public Use
  Company Number: PHHY2012BE024718

PATIENT
  Age: 75 Year
  Sex: Female

DRUGS (4)
  1. BUMETANIDE [Concomitant]
     Dosage: DOSE INCREASED
  2. BUMETANIDE [Concomitant]
     Dosage: 2.5 MG, DAILY
  3. GLEEVEC [Suspect]
     Indication: GASTROINTESTINAL STROMAL TUMOUR
     Dosage: 400 MG, DAILY
     Dates: start: 20110301
  4. GLEEVEC [Suspect]
     Dosage: 100 MG, UNK

REACTIONS (4)
  - ALVEOLITIS ALLERGIC [None]
  - DYSPNOEA [None]
  - OEDEMA PERIPHERAL [None]
  - LUNG INFILTRATION [None]
